FAERS Safety Report 5351116-7 (Version None)
Quarter: 2007Q2

REPORT INFORMATION
  Report Type: 
  Country: None (occurrence: None)
  Receive Date: 20070608
  Receipt Date: 20070528
  Transmission Date: 20071010
  Serious: Yes (Other)
  Sender: FDA-Public Use
  Company Number: JP-PFIZER INC-2007035394

PATIENT
  Sex: Male

DRUGS (3)
  1. XALATAN [Suspect]
     Route: 047
  2. TIMOLOL MALEATE [Suspect]
     Route: 031
  3. KARY UNI [Suspect]
     Dosage: DAILY DOSE:3DROP
     Route: 031

REACTIONS (3)
  - EPISTAXIS [None]
  - NASAL DISCOMFORT [None]
  - PHARYNGOLARYNGEAL DISCOMFORT [None]
